FAERS Safety Report 18750470 (Version 2)
Quarter: 2021Q1

REPORT INFORMATION
  Report Type: Spontaneous
  Country: US (occurrence: US)
  Receive Date: 20210118
  Receipt Date: 20210312
  Transmission Date: 20210419
  Serious: Yes (Other)
  Sender: FDA-Public Use
  Company Number: US-DRREDDYS-USA/USA/21/0131066

PATIENT
  Age: 20 Month
  Sex: Female

DRUGS (3)
  1. PREDNISONE. [Concomitant]
     Active Substance: PREDNISONE
     Indication: INFANTILE SPASMS
  2. VIGABATRIN. [Suspect]
     Active Substance: VIGABATRIN
     Indication: INFANTILE SPASMS
  3. CORTICOTROPIN [Suspect]
     Active Substance: CORTICOTROPIN
     Indication: INFANTILE SPASMS
     Dosage: 150 U/M2 BODY SURFACE AREA PER DAY (64 U/DAY) FOR 2 WEEKS

REACTIONS (4)
  - Poor sucking reflex [Unknown]
  - Aspiration [Unknown]
  - Somnolence [Unknown]
  - Treatment failure [Unknown]
